FAERS Safety Report 15947043 (Version 3)
Quarter: 2019Q2

REPORT INFORMATION
  Report Type: Spontaneous
  Country: US (occurrence: US)
  Receive Date: 20190212
  Receipt Date: 20190419
  Transmission Date: 20190711
  Serious: Yes (Other)
  Sender: FDA-Public Use
  Company Number: US-GLAXOSMITHKLINE-US2019GSK025138

PATIENT
  Sex: Female

DRUGS (1)
  1. PREVACID [Suspect]
     Active Substance: LANSOPRAZOLE
     Indication: GASTROOESOPHAGEAL REFLUX DISEASE
     Dosage: 15 MG, UNK
     Route: 065

REACTIONS (9)
  - Kidney infection [Unknown]
  - Ureteral disorder [Unknown]
  - Renal failure [Unknown]
  - Nephrolithiasis [Unknown]
  - Renal impairment [Unknown]
  - Chronic kidney disease [Unknown]
  - Nephrosclerosis [Unknown]
  - Renal disorder [Unknown]
  - Nephropathy [Unknown]
